FAERS Safety Report 14092464 (Version 2)
Quarter: 2018Q1

REPORT INFORMATION
  Report Type: Spontaneous
  Country: DE (occurrence: DE)
  Receive Date: 20171016
  Receipt Date: 20180315
  Transmission Date: 20180508
  Serious: Yes (Other)
  Sender: FDA-Public Use
  Company Number: GXKR2017DE005083

PATIENT
  Age: 58 Year
  Sex: Male
  Weight: 85 kg

DRUGS (4)
  1. CEFUROXIME. [Suspect]
     Active Substance: CEFUROXIME
     Indication: ABSCESS
     Dosage: 1000 MG, QD (500 MG, BID)
     Route: 048
     Dates: start: 20170601, end: 20170904
  2. RALTEGRAVIR. [Interacting]
     Active Substance: RALTEGRAVIR
     Indication: HIV INFECTION
     Dosage: 800 MG, QD (400 MG, BID)
     Route: 048
     Dates: end: 200602
  3. LOPINAVIR [Interacting]
     Active Substance: LOPINAVIR
     Indication: HIV INFECTION
     Dosage: 200 MG, BID (FOR EVERY TWO DAYS)
     Route: 048
     Dates: start: 200602
  4. RITONAVIR. [Interacting]
     Active Substance: RITONAVIR
     Indication: HIV INFECTION
     Dosage: 50 MG FOR EVERY DAYS)
     Route: 048

REACTIONS (3)
  - Drug effect decreased [Unknown]
  - Blood HIV RNA increased [Unknown]
  - Drug interaction [Unknown]

NARRATIVE: CASE EVENT DATE: 20170809
